FAERS Safety Report 7507230 (Version 2)
Quarter: 2020Q3

REPORT INFORMATION
  Report Type: Report from Study
  Country: BR (occurrence: BR)
  Receive Date: 20100729
  Receipt Date: 20100825
  Transmission Date: 20201105
  Serious: Yes (Hospitalization)
  Sender: FDA-Public Use
  Company Number: BR-WYE-H16389510

PATIENT
  Age: 81 Year
  Sex: Male
  Weight: 68 kg

DRUGS (2)
  1. BEVACIZUMAB. [Suspect]
     Active Substance: BEVACIZUMAB
     Indication: RENAL CELL CARCINOMA
     Route: 042
     Dates: start: 20100608
  2. INTERFERON ALFA NOS [Suspect]
     Active Substance: INTERFERON ALFA-2A OR INTERFERON ALFA-2B
     Indication: RENAL CELL CARCINOMA
     Dosage: 9 MU THREE TIMES WEEKLY
     Route: 058
     Dates: start: 20100608

REACTIONS (3)
  - Dizziness [Not Recovered/Not Resolved]
  - Cerebrovascular arteriovenous malformation [None]
  - Cerebral small vessel ischaemic disease [None]

NARRATIVE: CASE EVENT DATE: 20100717
